FAERS Safety Report 14115699 (Version 1)
Quarter: 2017Q4

REPORT INFORMATION
  Report Type: Report from Study
  Country: US (occurrence: US)
  Receive Date: 20171023
  Receipt Date: 20171023
  Transmission Date: 20180321
  Serious: No
  Sender: FDA-Public Use
  Company Number: PHEH2017US033209

PATIENT
  Sex: Female

DRUGS (3)
  1. ENTRESTO [Suspect]
     Active Substance: SACUBITRIL\VALSARTAN
     Dosage: 1 DF(SACUBITRIL 49 MG/VALSARTAN 51 MG), BID
     Route: 065
     Dates: start: 201708
  2. FISH OIL [Suspect]
     Active Substance: FISH OIL
     Indication: BLOOD CHOLESTEROL ABNORMAL
     Dosage: UNK
     Route: 065
  3. PLAVIX [Concomitant]
     Active Substance: CLOPIDOGREL BISULFATE
     Indication: PRODUCT USED FOR UNKNOWN INDICATION
     Dosage: UNK
     Route: 065

REACTIONS (10)
  - Fluid retention [Unknown]
  - Hypophagia [Unknown]
  - Vitamin D decreased [Unknown]
  - Retching [Unknown]
  - Concomitant disease aggravated [Not Recovered/Not Resolved]
  - Vertigo positional [Not Recovered/Not Resolved]
  - Blood cholesterol increased [Unknown]
  - Dysphonia [Unknown]
  - Regurgitation [Unknown]
  - Concomitant disease aggravated [Unknown]
